FAERS Safety Report 15042853 (Version 1)
Quarter: 2018Q2

REPORT INFORMATION
  Report Type: Spontaneous
  Country: US (occurrence: US)
  Receive Date: 20180621
  Receipt Date: 20180621
  Transmission Date: 20180711
  Serious: Yes (Other)
  Sender: FDA-Public Use
  Company Number: US-MICRO LABS LIMITED-BB2018-01204

PATIENT
  Age: 61 Year
  Sex: Female

DRUGS (8)
  1. RISPERIDONE. [Concomitant]
     Active Substance: RISPERIDONE
  2. AMOXICILLIN/CLAVULANIC ACID [Suspect]
     Active Substance: AMOXICILLIN\CLAVULANIC ACID
     Indication: TOOTH INFECTION
  3. FAMOTIDINE. [Concomitant]
     Active Substance: FAMOTIDINE
  4. ALENDRONIC ACID [Concomitant]
     Active Substance: ALENDRONIC ACID
  5. METFORMIN [Concomitant]
     Active Substance: METFORMIN HYDROCHLORIDE
  6. CLONAZEPAM. [Concomitant]
     Active Substance: CLONAZEPAM
  7. PARACETAMOL [Concomitant]
     Active Substance: ACETAMINOPHEN
  8. ATORVASTATIN [Concomitant]
     Active Substance: ATORVASTATIN

REACTIONS (2)
  - Jaundice cholestatic [Recovered/Resolved]
  - Drug-induced liver injury [Recovered/Resolved]
